FAERS Safety Report 15099206 (Version 1)
Quarter: 2018Q3

REPORT INFORMATION
  Report Type: Spontaneous
  Country: SE (occurrence: SE)
  Receive Date: 20180702
  Receipt Date: 20180702
  Transmission Date: 20181010
  Serious: Yes (Death, Hospitalization)
  Sender: FDA-Public Use
  Company Number: SE-MYLANLABS-2018M1047366

PATIENT
  Age: 30 Year
  Sex: Female
  Weight: 106 kg

DRUGS (2)
  1. PARACETAMOL [Suspect]
     Active Substance: ACETAMINOPHEN
     Indication: PRODUCT USED FOR UNKNOWN INDICATION
     Dosage: 40 TABLETS
     Route: 048
  2. ACETYLCYSTEINE. [Suspect]
     Active Substance: ACETYLCYSTEINE
     Indication: PRODUCT USED FOR UNKNOWN INDICATION
     Dosage: 80 VIALS EACH CONTAINING 10ML (2 G) OF ACETYLCYSTEINE (800ML ALTOGETHER) WERE ADDED TO 300ML SALI...
     Route: 050

REACTIONS (5)
  - Dose calculation error [Fatal]
  - Anaphylactic shock [Fatal]
  - Ventricular fibrillation [Fatal]
  - Cardiac arrest [Fatal]
  - Accidental overdose [Fatal]
